FAERS Safety Report 17480311 (Version 2)
Quarter: 2020Q1

REPORT INFORMATION
  Report Type: Spontaneous
  Country: ES (occurrence: ES)
  Receive Date: 20200228
  Receipt Date: 20200313
  Transmission Date: 20200409
  Serious: Yes (Death, Other)
  Sender: FDA-Public Use
  Company Number: ES-BIOMARINAP-ES-2020-128622

PATIENT
  Age: 16 Year
  Sex: Male
  Weight: 20 kg

DRUGS (5)
  1. ICATIBANT [Concomitant]
     Active Substance: ICATIBANT ACETATE
     Indication: ANGIOEDEMA
     Dosage: 30 MILLIGRAM
     Route: 042
     Dates: start: 20200211, end: 20200212
  2. DEXAMETHASONE. [Concomitant]
     Active Substance: DEXAMETHASONE
     Indication: ANGIOEDEMA
     Dosage: UNK
     Route: 042
     Dates: start: 20200210, end: 20200212
  3. VIMIZIM [Suspect]
     Active Substance: ELOSULFASE ALFA
     Indication: MUCOPOLYSACCHARIDOSIS IV
     Dosage: 39 MILLIGRAM, QW
     Route: 020
     Dates: start: 20151019, end: 20200203
  4. METHYLPREDNISOLONE. [Concomitant]
     Active Substance: METHYLPREDNISOLONE
     Indication: ANGIOEDEMA
     Dosage: UNK
     Route: 042
     Dates: start: 20200210, end: 20200212
  5. TRANEXAMIC ACID. [Concomitant]
     Active Substance: TRANEXAMIC ACID
     Indication: ANGIOEDEMA
     Dosage: UNK
     Dates: start: 20200211, end: 20200212

REACTIONS (8)
  - Gait disturbance [Not Recovered/Not Resolved]
  - Generalised oedema [Not Recovered/Not Resolved]
  - Cardio-respiratory arrest [Fatal]
  - Dislocation of vertebra [Not Recovered/Not Resolved]
  - Myelopathy [Not Recovered/Not Resolved]
  - Angioedema [Not Recovered/Not Resolved]
  - Cervical cord compression [Not Recovered/Not Resolved]
  - Cervical spinal stenosis [Not Recovered/Not Resolved]

NARRATIVE: CASE EVENT DATE: 20200212
